FAERS Safety Report 9308705 (Version 1)
Quarter: 2013Q2

REPORT INFORMATION
  Report Type: Spontaneous
  Country: GB (occurrence: GB)
  Receive Date: 20130524
  Receipt Date: 20130524
  Transmission Date: 20140414
  Serious: Yes (Death)
  Sender: FDA-Public Use
  Company Number: PHHY2013GB052175

PATIENT
  Age: 23 Year
  Sex: Female

DRUGS (2)
  1. FLUOXETINE [Suspect]
     Dosage: 1 DF, UNKNOWN
  2. DINITROPHENOL [Interacting]

REACTIONS (2)
  - Toxicity to various agents [Fatal]
  - Drug interaction [Fatal]
